FAERS Safety Report 8999747 (Version 1)
Quarter: 2013Q1

REPORT INFORMATION
  Report Type: Report from Study
  Country: VE (occurrence: VE)
  Receive Date: 20130102
  Receipt Date: 20130102
  Transmission Date: 20140127
  Serious: Yes (Other)
  Sender: FDA-Public Use
  Company Number: VE-ABBOTT-12P-178-1028545-00

PATIENT
  Age: 60 None
  Sex: Female

DRUGS (1)
  1. HUMIRA [Suspect]
     Indication: PSORIASIS
     Route: 058
     Dates: start: 20121121, end: 20121220

REACTIONS (2)
  - Tuberculin test positive [Recovering/Resolving]
  - Psoriasis [Not Recovered/Not Resolved]
